FAERS Safety Report 7419493-0 (Version None)
Quarter: 2011Q2

REPORT INFORMATION
  Report Type: 
  Country: None (occurrence: None)
  Receive Date: 20110413
  Receipt Date: 20110413
  Transmission Date: 20111010
  Serious: Yes (Disabling)
  Sender: FDA-Public Use
  Company Number: None

PATIENT
  Age: 62 Year
  Sex: Female
  Weight: 73.9363 kg

DRUGS (1)
  1. ENTOCORT EC [Suspect]
     Indication: COLITIS
     Dosage: 1 PER DAY

REACTIONS (6)
  - HAEMORRHAGE [None]
  - SKIN DISCOLOURATION [None]
  - DRY SKIN [None]
  - PAIN IN EXTREMITY [None]
  - INJURY [None]
  - SKIN DISORDER [None]
